FAERS Safety Report 23497200 (Version 1)
Quarter: 2024Q1

REPORT INFORMATION
  Report Type: Spontaneous
  Country: US (occurrence: None)
  Receive Date: 20240207
  Receipt Date: 20240207
  Transmission Date: 20240410
  Serious: No
  Sender: FDA-Public Use
  Company Number: US-ROCHE-3295997

PATIENT
  Sex: Female

DRUGS (13)
  1. XOLAIR [Suspect]
     Active Substance: OMALIZUMAB
     Indication: Arrhythmia
     Dosage: STRENGTH: 150MG/ML AND 75 MG
     Route: 058
     Dates: start: 20221116
  2. XOLAIR [Suspect]
     Active Substance: OMALIZUMAB
  3. XOLAIR [Suspect]
     Active Substance: OMALIZUMAB
  4. ADVAIR DISKUS [Concomitant]
     Active Substance: FLUTICASONE PROPIONATE\SALMETEROL XINAFOATE
  5. ALBUTEROL SULFATE [Concomitant]
     Active Substance: ALBUTEROL SULFATE
  6. DICLOFENAC SODIUM [Concomitant]
     Active Substance: DICLOFENAC\DICLOFENAC SODIUM
  7. FLUTICASONE [Concomitant]
     Active Substance: FLUTICASONE
  8. SALMETEROL [Concomitant]
     Active Substance: SALMETEROL
  9. RANITIDINE [Concomitant]
     Active Substance: RANITIDINE
  10. HCL [Concomitant]
  11. SULFAMETHOXAZOLE [Concomitant]
     Active Substance: SULFAMETHOXAZOLE
  12. TRIMETHOPRIM [Concomitant]
     Active Substance: TRIMETHOPRIM
  13. VENTOLIN HFA [Concomitant]
     Active Substance: ALBUTEROL SULFATE

REACTIONS (2)
  - Off label use [Unknown]
  - No adverse event [Unknown]
